FAERS Safety Report 9498906 (Version 1)
Quarter: 2013Q3

REPORT INFORMATION
  Report Type: Spontaneous
  Country: BR (occurrence: BR)
  Receive Date: 20130904
  Receipt Date: 20130904
  Transmission Date: 20140515
  Serious: Yes (Other)
  Sender: FDA-Public Use
  Company Number: BR-009507513-1309BRA000946

PATIENT
  Age: 33 Year
  Sex: Female
  Weight: 75 kg

DRUGS (1)
  1. MERCILON CONTI [Suspect]
     Dosage: UNK, QD
     Route: 048
     Dates: end: 201101

REACTIONS (2)
  - Labour complication [Unknown]
  - Maternal exposure before pregnancy [Unknown]
